FAERS Safety Report 11067847 (Version 1)
Quarter: 2015Q2

REPORT INFORMATION
  Report Type: Spontaneous
  Country: US (occurrence: US)
  Receive Date: 20150427
  Receipt Date: 20150427
  Transmission Date: 20150821
  Serious: Yes (Other)
  Sender: FDA-Public Use
  Company Number: US-JNJFOC-20150412732

PATIENT
  Age: 62 Year
  Sex: Male
  Weight: 85.1 kg

DRUGS (12)
  1. MULTIVITAMINS [Concomitant]
     Active Substance: VITAMINS
     Dosage: LESS THAN 1 MONTH
     Route: 048
     Dates: start: 20150330
  2. SIMVASTATIN. [Concomitant]
     Active Substance: SIMVASTATIN
     Dosage: ONE TABLET AT BEDTIME, LESS THAN 6 MONTHS
     Route: 048
     Dates: start: 20141124
  3. CITALOPRAM HYDROBROMIDE. [Concomitant]
     Active Substance: CITALOPRAM HYDROBROMIDE
     Dosage: MORE THAN 7 YEARS
     Route: 048
     Dates: start: 20071005
  4. DILTIAZEM HCL [Concomitant]
     Active Substance: DILTIAZEM HYDROCHLORIDE
     Dosage: MORE THAN 1 YEAR
     Route: 048
     Dates: start: 20140219
  5. FLUTICASONE PROPIONATE. [Concomitant]
     Active Substance: FLUTICASONE PROPIONATE
     Dosage: 50 MCG/ACT NASAL SUSPENSION, INSTILL 2 SQUIRT DAILY PRN EACH NOSTRIL, LESS THAN 1 MONTH
     Route: 045
     Dates: start: 20150330
  6. SELENIUM [Concomitant]
     Active Substance: SELENIUM
     Dosage: LESS THAN 1 MONTH
     Route: 048
     Dates: start: 20150330
  7. TRIAMTERENE / HCTZ [Concomitant]
     Dosage: HALF TABLET, 37.5 TO 25 MG, MORETHAN 7 YEARS
     Route: 048
     Dates: start: 20070709
  8. TYLENOL REGULAR STRENGTH [Suspect]
     Active Substance: ACETAMINOPHEN
     Route: 048
  9. TYLENOL REGULAR STRENGTH [Suspect]
     Active Substance: ACETAMINOPHEN
     Indication: PRODUCT USED FOR UNKNOWN INDICATION
     Dosage: PRN
     Route: 048
  10. OMEPRAZOLE. [Concomitant]
     Active Substance: OMEPRAZOLE
     Dosage: CAPSULE DELAYED RELEASE, MORE THAN 1 YEAR
     Route: 048
     Dates: start: 20140219
  11. VITAMIN D [Concomitant]
     Active Substance: CHOLECALCIFEROL
     Dosage: 1000 UNIT, APPROXIMATELY 4 YEARS
     Route: 048
     Dates: start: 20110427
  12. ZETIA [Concomitant]
     Active Substance: EZETIMIBE
     Dosage: LESS THAN 1 YEAR
     Route: 048
     Dates: start: 20140508

REACTIONS (12)
  - Obesity [Not Recovered/Not Resolved]
  - Vitamin D deficiency [Not Recovered/Not Resolved]
  - Arthralgia [Unknown]
  - Prostate cancer [Not Recovered/Not Resolved]
  - Anxiety [Not Recovered/Not Resolved]
  - Atrial fibrillation [Not Recovered/Not Resolved]
  - Hypertension [Not Recovered/Not Resolved]
  - Depression [Not Recovered/Not Resolved]
  - Large intestine polyp [Not Recovered/Not Resolved]
  - Hyperlipidaemia [Not Recovered/Not Resolved]
  - Abdominal hernia repair [Unknown]
  - Metastatic renal cell carcinoma [Not Recovered/Not Resolved]

NARRATIVE: CASE EVENT DATE: 20070824
